FAERS Safety Report 21915120 (Version 1)
Quarter: 2023Q1

REPORT INFORMATION
  Report Type: Spontaneous
  Country: US (occurrence: US)
  Receive Date: 20230126
  Receipt Date: 20230126
  Transmission Date: 20230417
  Serious: No
  Sender: FDA-Public Use
  Company Number: US-CATALYST PHARMACEUTICALS, INC-2022CAT00116

PATIENT
  Sex: Female
  Weight: 41.73 kg

DRUGS (14)
  1. FIRDAPSE [Suspect]
     Active Substance: AMIFAMPRIDINE PHOSPHATE
     Indication: Myasthenic syndrome
     Dosage: 10 MG, 4X/DAY
     Route: 048
     Dates: start: 202202, end: 202203
  2. FIRDAPSE [Suspect]
     Active Substance: AMIFAMPRIDINE PHOSPHATE
     Dosage: 15 MG, 3X/DAY (IN ADDITION TO 20 MG IN THE MORNING)
     Route: 048
     Dates: start: 2022
  3. FIRDAPSE [Suspect]
     Active Substance: AMIFAMPRIDINE PHOSPHATE
     Dosage: 15 MG, 4X/DAY
     Route: 048
     Dates: start: 202203, end: 2022
  4. FIRDAPSE [Suspect]
     Active Substance: AMIFAMPRIDINE PHOSPHATE
     Dosage: 20 MG, IN THE MORNING (IN ADDITION TO 15 MG 3X/DAY)
     Route: 048
     Dates: start: 2022, end: 2022
  5. FIRDAPSE [Suspect]
     Active Substance: AMIFAMPRIDINE PHOSPHATE
     Dosage: 15 MG, 3X/DAY (IN ADDITION TO 20 MG IN THE MORNING)
     Route: 048
     Dates: start: 2022, end: 2022
  6. FIRDAPSE [Suspect]
     Active Substance: AMIFAMPRIDINE PHOSPHATE
     Dosage: 20 MG, IN THE MORNING (IN ADDITION TO 15 MG 3X/DAY)
     Route: 048
     Dates: start: 2022
  7. CENTRUM KIDS CHEWABLE VITAMIN [Concomitant]
     Dosage: UNK, 1X/DAY
  8. CULTURELLE KIDS PROBIOTIC (LACTOBACILLUS RHAMNOSUS GG) [Concomitant]
     Dosage: 1 DOSAGE UNIT, 1X/DAY
  9. FAMOTIDINE [Concomitant]
     Active Substance: FAMOTIDINE
     Dosage: 12 MG, 1X/DAY
  10. PREDNISOLONE [Concomitant]
     Active Substance: PREDNISOLONE
     Dosage: 15 MG, EVERY OTHER DAY
     Dates: start: 2022
  11. PREDNISOLONE [Concomitant]
     Active Substance: PREDNISOLONE
     Dosage: 30 MG, 1X/DAY
     Dates: end: 2022
  12. RITUXAN [Concomitant]
     Active Substance: RITUXIMAB
     Dosage: UNK, EVERY 6 MONTHS
     Route: 042
  13. CLOTRIMAZOLE [Concomitant]
     Active Substance: CLOTRIMAZOLE
     Dosage: UNK, AS NEEDED
  14. VALIUM [Concomitant]
     Active Substance: DIAZEPAM
     Dosage: UNK, EVERY 4 WEEKS

REACTIONS (8)
  - Product substitution issue [Not Recovered/Not Resolved]
  - Pruritus [Not Recovered/Not Resolved]
  - Erythema [Not Recovered/Not Resolved]
  - Therapeutic product effect delayed [Not Recovered/Not Resolved]
  - Off label use [Not Recovered/Not Resolved]
  - Abdominal pain upper [Not Recovered/Not Resolved]
  - Abdominal discomfort [Not Recovered/Not Resolved]
  - Nausea [Not Recovered/Not Resolved]

NARRATIVE: CASE EVENT DATE: 20220101
